FAERS Safety Report 13911007 (Version 4)
Quarter: 2018Q1

REPORT INFORMATION
  Report Type: Spontaneous
  Country: JP (occurrence: JP)
  Receive Date: 20170828
  Receipt Date: 20180117
  Transmission Date: 20180508
  Serious: Yes (Hospitalization)
  Sender: FDA-Public Use
  Company Number: JP-009507513-1704JPN000102J

PATIENT
  Age: 70 Year
  Sex: Male
  Weight: 49 kg

DRUGS (14)
  1. KEYTRUDA [Suspect]
     Active Substance: PEMBROLIZUMAB
     Indication: LUNG ADENOCARCINOMA STAGE IV
     Dosage: 200 MG, Q3W
     Route: 041
     Dates: start: 20170329, end: 20170712
  2. METHYLPREDNISOLONE ACETATE. [Concomitant]
     Active Substance: METHYLPREDNISOLONE ACETATE
     Indication: FACE OEDEMA
     Dosage: 40 MG, QD
     Route: 051
     Dates: start: 20170818, end: 20170824
  3. PREDONINE [Concomitant]
     Active Substance: PREDNISOLONE
     Indication: LIP OEDEMA
  4. PLETAAL [Concomitant]
     Active Substance: CILOSTAZOL
     Dosage: 100 MG, BID
     Route: 048
  5. METHYLPREDNISOLONE ACETATE. [Concomitant]
     Active Substance: METHYLPREDNISOLONE ACETATE
     Indication: LIP OEDEMA
  6. E KEPPRA [Concomitant]
     Active Substance: LEVETIRACETAM
     Dosage: 500 MG, BID
     Route: 048
  7. METHYLPREDNISOLONE ACETATE. [Concomitant]
     Active Substance: METHYLPREDNISOLONE ACETATE
     Indication: OESOPHAGEAL OEDEMA
  8. LANSOPRAZOLE. [Concomitant]
     Active Substance: LANSOPRAZOLE
     Dosage: 15 MG, QD
     Route: 048
  9. POLAPREZINC [Concomitant]
     Active Substance: POLAPREZINC
     Dosage: 75 MG, BID
     Route: 048
  10. PREDONINE [Concomitant]
     Active Substance: PREDNISOLONE
     Indication: OESOPHAGEAL OEDEMA
  11. METHYLPREDNISOLONE ACETATE. [Concomitant]
     Active Substance: METHYLPREDNISOLONE ACETATE
     Indication: PHARYNGEAL OEDEMA
  12. PREDONINE [Concomitant]
     Active Substance: PREDNISOLONE
     Indication: FACE OEDEMA
     Dosage: 30 MG, QD
     Route: 048
     Dates: start: 20170825, end: 20170831
  13. PREDONINE [Concomitant]
     Active Substance: PREDNISOLONE
     Indication: PHARYNGEAL OEDEMA
  14. ATORVASTATIN [Concomitant]
     Active Substance: ATORVASTATIN
     Dosage: 10 MG, QD
     Route: 048

REACTIONS (7)
  - Lip oedema [Recovering/Resolving]
  - Pharyngeal oedema [Recovering/Resolving]
  - Pyrexia [Recovered/Resolved]
  - Oesophageal oedema [Recovering/Resolving]
  - Face oedema [Recovering/Resolving]
  - Decreased appetite [Recovered/Resolved]
  - Decreased appetite [Recovering/Resolving]

NARRATIVE: CASE EVENT DATE: 20170329
